FAERS Safety Report 21608765 (Version 2)
Quarter: 2022Q4

REPORT INFORMATION
  Report Type: Spontaneous
  Country: IE (occurrence: IE)
  Receive Date: 20221117
  Receipt Date: 20221221
  Transmission Date: 20230113
  Serious: Yes (Disabling)
  Sender: FDA-Public Use
  Company Number: None

PATIENT
  Age: 78 Year
  Sex: Male
  Weight: 80 kg

DRUGS (1)
  1. APIXABAN [Suspect]
     Active Substance: APIXABAN
     Indication: Atrial fibrillation
     Dosage: 5 MG BD, LONG TREATMENT, EXACT DATES NOT KNOWN
     Route: 048

REACTIONS (4)
  - Quadriplegia [Not Recovered/Not Resolved]
  - Paraplegia [Not Recovered/Not Resolved]
  - Spinal epidural haematoma [Not Recovered/Not Resolved]
  - Extradural haematoma [Not Recovered/Not Resolved]

NARRATIVE: CASE EVENT DATE: 20220822
